FAERS Safety Report 16214866 (Version 12)
Quarter: 2020Q2

REPORT INFORMATION
  Report Type: Report from Study
  Country: US (occurrence: US)
  Receive Date: 20190418
  Receipt Date: 20200609
  Transmission Date: 20200713
  Serious: Yes (Hospitalization)
  Sender: FDA-Public Use
  Company Number: US-ACTELION-A-NJ2019-189198

PATIENT
  Age: 31 Year
  Sex: Female
  Weight: 84.35 kg

DRUGS (14)
  1. OPSUMIT [Suspect]
     Active Substance: MACITENTAN
     Indication: PULMONARY ARTERIAL HYPERTENSION
     Dosage: 10 MG, QD
     Route: 048
  2. VELETRI [Suspect]
     Active Substance: EPOPROSTENOL
     Dosage: 16.8 NG/KG, PER MIN
     Route: 042
  3. VELETRI [Suspect]
     Active Substance: EPOPROSTENOL
     Indication: PULMONARY ARTERIAL HYPERTENSION
     Dosage: 30.2 NG/KG, PER MIN
     Route: 042
  4. VELETRI [Suspect]
     Active Substance: EPOPROSTENOL
     Dosage: 6.4 NG/KG, PER MIN
     Route: 042
  5. VELETRI [Suspect]
     Active Substance: EPOPROSTENOL
     Dosage: 13.3 NG/KG, PER MIN
     Route: 042
  6. TADALAFIL. [Concomitant]
     Active Substance: TADALAFIL
     Dosage: UNK
  7. FAMOTIDINE. [Concomitant]
     Active Substance: FAMOTIDINE
     Dosage: UNK
  8. ESOMEPRAZOLE. [Concomitant]
     Active Substance: ESOMEPRAZOLE MAGNESIUM
     Dosage: UNK
  9. VELETRI [Suspect]
     Active Substance: EPOPROSTENOL
     Dosage: 6 NG/KG, PER MIN
     Route: 042
  10. VELETRI [Suspect]
     Active Substance: EPOPROSTENOL
     Dosage: 25.1 NG/KG, PER MIN
     Route: 042
  11. FOLIC ACID. [Concomitant]
     Active Substance: FOLIC ACID
     Dosage: UNK
  12. METHOTREXATE. [Concomitant]
     Active Substance: METHOTREXATE
     Dosage: UNK
  13. VELETRI [Suspect]
     Active Substance: EPOPROSTENOL
     Dosage: 18.73 NG/KG, PER MIN
     Route: 042
  14. WARFARIN [Concomitant]
     Active Substance: WARFARIN
     Dosage: UNK

REACTIONS (16)
  - Catheter site pruritus [Unknown]
  - Catheter site dermatitis [Unknown]
  - Pain in jaw [Unknown]
  - Diarrhoea [Not Recovered/Not Resolved]
  - Cough [Unknown]
  - Malaise [Unknown]
  - Urticaria [Unknown]
  - Paraesthesia [Unknown]
  - Hospitalisation [Unknown]
  - Catheter site erythema [Unknown]
  - Vomiting [Unknown]
  - Dyspnoea exertional [Unknown]
  - Haemoptysis [Recovered/Resolved]
  - Hypersensitivity [Unknown]
  - Pharyngeal haemorrhage [Unknown]
  - Flushing [Unknown]

NARRATIVE: CASE EVENT DATE: 20190406
